FAERS Safety Report 7972627 (Version 4)
Quarter: 2013Q3

REPORT INFORMATION
  Report Type: Spontaneous
  Country: US (occurrence: US)
  Receive Date: 20110603
  Receipt Date: 20130911
  Transmission Date: 20140515
  Serious: Yes (Death)
  Sender: FDA-Public Use
  Company Number: US-BAYER-2010-003171

PATIENT
  Age: 39 Year
  Sex: Female
  Weight: 93 kg

DRUGS (6)
  1. YAZ [Suspect]
     Indication: CONTRACEPTION
     Dosage: UNK
     Dates: start: 20080721, end: 20080922
  2. YASMIN [Suspect]
     Indication: CONTRACEPTION
     Dosage: UNK
     Dates: start: 200507, end: 200703
  3. FLUCONAZOLE [Concomitant]
     Dosage: 150 MG, UNK
  4. FLAVOXATE HCL [Concomitant]
     Dosage: 150 MG, UNK
  5. CIPROFLOXACIN [Concomitant]
     Dosage: 500 MG, UNK
  6. LASIX [FUROSEMIDE] [Concomitant]
     Indication: OEDEMA
     Dosage: 40 MG, DAILY
     Route: 048
     Dates: start: 200705, end: 20080922

REACTIONS (5)
  - Cardio-respiratory arrest [Fatal]
  - Peripheral coldness [Fatal]
  - Pallor [Fatal]
  - Pulmonary embolism [Fatal]
  - Deep vein thrombosis [Fatal]
